FAERS Safety Report 6027918-0 (Version None)
Quarter: 2009Q1

REPORT INFORMATION
  Report Type: 
  Country: None (occurrence: None)
  Receive Date: 20090105
  Receipt Date: 20081227
  Transmission Date: 20090719
  Serious: Yes (Other)
  Sender: FDA-Public Use
  Company Number: US-AMGEN-QUU325883

PATIENT
  Sex: Male

DRUGS (1)
  1. ENBREL [Suspect]
     Indication: ANKYLOSING SPONDYLITIS
     Route: 058
     Dates: start: 20051001

REACTIONS (6)
  - ASTHENIA [None]
  - BLINDNESS [None]
  - CATARACT [None]
  - DECREASED APPETITE [None]
  - MALAISE [None]
  - OCULAR HYPERAEMIA [None]
